FAERS Safety Report 15564197 (Version 2)
Quarter: 2018Q4

REPORT INFORMATION
  Report Type: Spontaneous
  Country: US (occurrence: US)
  Receive Date: 20181030
  Receipt Date: 20181117
  Transmission Date: 20190205
  Serious: Yes (Other)
  Sender: FDA-Public Use
  Company Number: US-ROCHE-2206115

PATIENT
  Age: 6 Decade
  Sex: Male

DRUGS (1)
  1. AVASTIN [Suspect]
     Active Substance: BEVACIZUMAB
     Indication: AGE-RELATED MACULAR DEGENERATION
     Dosage: EYE INJECTION
     Route: 031

REACTIONS (5)
  - Vitreous floaters [Unknown]
  - Headache [Unknown]
  - Blindness unilateral [Not Recovered/Not Resolved]
  - Off label use [Unknown]
  - Vision blurred [Unknown]
